FAERS Safety Report 7899937-0 (Version None)
Quarter: 2011Q4

REPORT INFORMATION
  Report Type: 
  Country: None (occurrence: None)
  Receive Date: 20111107
  Receipt Date: 20111011
  Transmission Date: 20120403
  Serious: Yes (Other)
  Sender: FDA-Public Use
  Company Number: US-AMGEN-USASP2011037949

PATIENT
  Age: 58 Year
  Sex: Female

DRUGS (5)
  1. OMNARIS [Concomitant]
     Dosage: UNK
  2. METHOTREXATE [Concomitant]
     Dosage: UNK
  3. ENBREL [Suspect]
     Indication: RHEUMATOID ARTHRITIS
     Dosage: 50 MG, QWK
     Dates: start: 20110710, end: 20110814
  4. MEDROL [Concomitant]
     Dosage: UNK
  5. PATANOL [Concomitant]
     Dosage: UNK

REACTIONS (17)
  - HEADACHE [None]
  - RHEUMATOID ARTHRITIS [None]
  - ARTHRALGIA [None]
  - LATENT TUBERCULOSIS [None]
  - FATIGUE [None]
  - VISION BLURRED [None]
  - DIZZINESS [None]
  - TREMOR [None]
  - MUSCULAR WEAKNESS [None]
  - PAIN IN EXTREMITY [None]
  - LETHARGY [None]
  - RASH [None]
  - HYPERGLYCAEMIA [None]
  - HYPOGLYCAEMIA [None]
  - COUGH [None]
  - THROAT IRRITATION [None]
  - OEDEMA PERIPHERAL [None]
